FAERS Safety Report 4578473-3 (Version None)
Quarter: 2005Q1

REPORT INFORMATION
  Report Type: 
  Country: None (occurrence: None)
  Receive Date: 20050211
  Receipt Date: 20050202
  Transmission Date: 20050727
  Serious: Yes (Hospitalization, Other)
  Sender: FDA-Public Use
  Company Number: DE-JNJFOC-20050200811

PATIENT
  Age: 53 Year
  Sex: Male

DRUGS (18)
  1. RISPERDAL [Suspect]
     Indication: DRUG USE FOR UNKNOWN INDICATION
  2. EUTHYROX [Suspect]
     Indication: DRUG USE FOR UNKNOWN INDICATION
  3. AKINETON RET [Suspect]
     Indication: DRUG USE FOR UNKNOWN INDICATION
  4. LEPONEX [Suspect]
  5. LEPONEX [Suspect]
  6. LEPONEX [Suspect]
  7. LEPONEX [Suspect]
  8. LEPONEX [Suspect]
  9. LEPONEX [Suspect]
     Indication: DRUG USE FOR UNKNOWN INDICATION
  10. ZYPREXA [Suspect]
  11. ZYPREXA [Suspect]
  12. ZYPREXA [Suspect]
  13. ZYPREXA [Suspect]
  14. ZYPREXA [Suspect]
     Indication: DRUG USE FOR UNKNOWN INDICATION
  15. TAVOR [Suspect]
  16. TAVOR [Suspect]
  17. TAVOR [Suspect]
  18. TAVOR [Suspect]
     Indication: DRUG USE FOR UNKNOWN INDICATION

REACTIONS (6)
  - ATRIAL FIBRILLATION [None]
  - BODY TEMPERATURE INCREASED [None]
  - C-REACTIVE PROTEIN INCREASED [None]
  - CARDIAC FAILURE CHRONIC [None]
  - MALAISE [None]
  - MYOCARDITIS [None]
